FAERS Safety Report 8508237-7 (Version None)
Quarter: 2012Q3

REPORT INFORMATION
  Report Type: 
  Country: None (occurrence: None)
  Receive Date: 20120713
  Receipt Date: 20120703
  Transmission Date: 20120928
  Serious: Yes (Other)
  Sender: FDA-Public Use
  Company Number: IT-BRISTOL-MYERS SQUIBB COMPANY-16713125

PATIENT
  Age: 70 Year
  Sex: Male

DRUGS (3)
  1. ERBITUX [Suspect]
     Indication: HEAD AND NECK CANCER
     Route: 042
     Dates: start: 20111215, end: 20120305
  2. FLUOROURACIL [Concomitant]
     Dates: start: 20111124, end: 20120105
  3. CARBOPLATIN [Concomitant]
     Dates: start: 20111124, end: 20120217

REACTIONS (1)
  - LEUKOCYTOCLASTIC VASCULITIS [None]
